FAERS Safety Report 10077353 (Version 2)
Quarter: 2014Q2

REPORT INFORMATION
  Report Type: Spontaneous
  Country: US (occurrence: US)
  Receive Date: 20140414
  Receipt Date: 20140414
  Transmission Date: 20141212
  Serious: No
  Sender: FDA-Public Use
  Company Number: US-BANPHARM-20131393

PATIENT
  Age: 81 Year
  Sex: Female
  Weight: 83.91 kg

DRUGS (4)
  1. ALEVE LIQUID GELS 220 MG [Suspect]
     Dosage: 1 DF,
     Route: 048
     Dates: start: 2012
  2. MEDICATIONS FOR HEART MURMUR [Concomitant]
  3. HIGH BLOOD PRESSURE MEDICATION [Concomitant]
  4. ACID REFLUX MEDICATION [Concomitant]

REACTIONS (2)
  - Pollakiuria [Unknown]
  - Incorrect drug administration duration [Unknown]
